FAERS Safety Report 4767656-5 (Version None)
Quarter: 2005Q3

REPORT INFORMATION
  Report Type: 
  Country: None (occurrence: None)
  Receive Date: 20050912
  Receipt Date: 20050829
  Transmission Date: 20060218
  Serious: Yes (Hospitalization)
  Sender: FDA-Public Use
  Company Number: 2005108427

PATIENT
  Age: 60 Year
  Sex: Female
  Weight: 78 kg

DRUGS (9)
  1. IDARUBICIN HCL [Suspect]
     Indication: ACUTE MYELOID LEUKAEMIA
     Dosage: (16 MG, DAILY INTERVAL:  FOR 3 DAYS), INTRAVENOUS
     Route: 042
     Dates: start: 20050715, end: 20050717
  2. CYTARABINE [Suspect]
     Indication: ACUTE MYELOID LEUKAEMIA
     Dosage: (180 MG, DAILY INTERVAL:  DAY 1 - DAY 5), INTRAVENOUS
     Route: 042
     Dates: start: 20050715, end: 20050719
  3. ETOPOSIDE [Suspect]
     Indication: ACUTE MYELOID LEUKAEMIA
     Dosage: (130 MG, DAILY INTERVAL:  DAY 1 - DAY 5), INTRAVENOUS
     Route: 042
     Dates: start: 20050715, end: 20050719
  4. FILGRASTIM (FILGRASTIM) [Suspect]
     Indication: ILL-DEFINED DISORDER
     Dosage: 300 MCG (300 MCG, DAILY INTERVAL:  DAILY), SUBCUTANEOUS
     Route: 058
     Dates: start: 20050720, end: 20050722
  5. DIFLUCAN [Concomitant]
  6. DEPO-RALOVERA (MEDROXYPROGESTERONE ACETATE) [Concomitant]
  7. ESTRADIOL [Concomitant]
  8. MAXOLON [Concomitant]
  9. ATIVAN [Concomitant]

REACTIONS (6)
  - DEHYDRATION [None]
  - FEBRILE NEUTROPENIA [None]
  - HYPOVOLAEMIA [None]
  - PYREXIA [None]
  - SYNCOPE [None]
  - VOMITING [None]
